FAERS Safety Report 6153239-1 (Version None)
Quarter: 2009Q2

REPORT INFORMATION
  Report Type: 
  Country: None (occurrence: None)
  Receive Date: 20090413
  Receipt Date: 20090403
  Transmission Date: 20091009
  Serious: Yes (Hospitalization)
  Sender: FDA-Public Use
  Company Number: US-ELI_LILLY_AND_COMPANY-US200904000991

PATIENT
  Sex: Female

DRUGS (2)
  1. FORTEO [Suspect]
     Indication: OSTEOPOROSIS
     Dosage: UNK, UNK
     Dates: start: 20070101
  2. OXYGEN [Concomitant]
     Dates: start: 20060101

REACTIONS (4)
  - DIARRHOEA [None]
  - EMPHYSEMA [None]
  - FEAR [None]
  - MYCOBACTERIAL INFECTION [None]
